FAERS Safety Report 6301505-9 (Version None)
Quarter: 2009Q3

REPORT INFORMATION
  Report Type: 
  Country: None (occurrence: None)
  Receive Date: 20090807
  Receipt Date: 20090731
  Transmission Date: 20100115
  Serious: Yes (Other)
  Sender: FDA-Public Use
  Company Number: B0585058A

PATIENT
  Age: 79 Year
  Sex: Male

DRUGS (2)
  1. PAXIL [Suspect]
     Indication: DEPRESSION
     Dosage: 10MG PER DAY
     Route: 048
     Dates: start: 20090615, end: 20090715
  2. TOFRANIL [Concomitant]

REACTIONS (3)
  - DISTURBANCE IN SEXUAL AROUSAL [None]
  - IMPULSE-CONTROL DISORDER [None]
  - MANIA [None]
